FAERS Safety Report 16284477 (Version 1)
Quarter: 2019Q2

REPORT INFORMATION
  Report Type: Spontaneous
  Country: FR (occurrence: FR)
  Receive Date: 20190508
  Receipt Date: 20190508
  Transmission Date: 20190711
  Serious: Yes (Hospitalization, Other)
  Sender: FDA-Public Use
  Company Number: FR-AUROBINDO-AUR-APL-2019-024715

PATIENT
  Age: 17 Year
  Sex: Female
  Weight: 50.8 kg

DRUGS (2)
  1. PARACETAMOL TABLET [Suspect]
     Active Substance: ACETAMINOPHEN
     Indication: POISONING DELIBERATE
     Dosage: 16 GRAM
     Route: 048
     Dates: start: 20190403, end: 20190403
  2. HELICIDINE [Suspect]
     Active Substance: ESCARGOT
     Indication: TOXICITY TO VARIOUS AGENTS
     Dosage: 1 FLACON
     Route: 048
     Dates: start: 20190403, end: 20190403

REACTIONS (3)
  - Abdominal pain [Recovered/Resolved]
  - Poisoning deliberate [Recovered/Resolved]
  - Nausea [Recovered/Resolved]

NARRATIVE: CASE EVENT DATE: 20190403
